FAERS Safety Report 10579812 (Version 5)
Quarter: 2014Q4

REPORT INFORMATION
  Report Type: Spontaneous
  Country: US (occurrence: US)
  Receive Date: 20141112
  Receipt Date: 20141223
  Transmission Date: 20150529
  Serious: Yes (Other)
  Sender: FDA-Public Use
  Company Number: CHPA2013US011265

PATIENT
  Age: 45 Year

DRUGS (5)
  1. EXCEDRIN BACK AND BODY [Suspect]
     Active Substance: ACETAMINOPHEN\ASPIRIN
     Indication: SCIATICA
  2. EXCEDRIN BACK AND BODY [Suspect]
     Active Substance: ACETAMINOPHEN\ASPIRIN
     Indication: MIGRAINE
  3. EXCEDRIN BACK AND BODY [Suspect]
     Active Substance: ACETAMINOPHEN\ASPIRIN
     Indication: PAIN
     Dosage: UNK
     Route: 048
  4. EXCEDRIN BACK AND BODY [Suspect]
     Active Substance: ACETAMINOPHEN\ASPIRIN
     Indication: OFF LABEL USE
  5. EXCEDRIN BACK AND BODY [Suspect]
     Active Substance: ACETAMINOPHEN\ASPIRIN
     Indication: ARTHRITIS
     Dosage: 1 DF, BID
     Route: 048
     Dates: start: 2012

REACTIONS (6)
  - Arthritis [Unknown]
  - Arthralgia [Unknown]
  - Somnolence [Unknown]
  - Therapeutic response unexpected [Unknown]
  - Underdose [Unknown]
  - Rebound effect [Unknown]

NARRATIVE: CASE EVENT DATE: 2012
